FAERS Safety Report 23079615 (Version 1)
Quarter: 2023Q4

REPORT INFORMATION
  Report Type: Spontaneous
  Country: None (occurrence: US)
  Receive Date: 20231018
  Receipt Date: 20231018
  Transmission Date: 20240110
  Serious: Yes (Hospitalization, Other)
  Sender: FDA-Public Use
  Company Number: US-Ascend Therapeutics US, LLC-2147188

PATIENT
  Age: 34 Year
  Sex: Male

DRUGS (2)
  1. ANDROGEL [Suspect]
     Active Substance: TESTOSTERONE
     Indication: Muscle building therapy
     Route: 065
  2. TESTOSTERONE [Suspect]
     Active Substance: TESTOSTERONE
     Route: 065

REACTIONS (5)
  - Thrombocytosis [Unknown]
  - Acute myocardial infarction [Unknown]
  - Coronary artery dissection [Unknown]
  - Thrombosis [Unknown]
  - Product use in unapproved indication [None]
